FAERS Safety Report 25341977 (Version 1)
Quarter: 2025Q2

REPORT INFORMATION
  Report Type: Spontaneous
  Country: US (occurrence: None)
  Receive Date: 20250520
  Receipt Date: 20250520
  Transmission Date: 20250716
  Serious: Yes (Other)
  Sender: FDA-CTU
  Company Number: None

PATIENT
  Age: 38 Day
  Sex: Female
  Weight: 62.55 kg

DRUGS (1)
  1. CYANOCOBALAMIN\SEMAGLUTIDE [Suspect]
     Active Substance: CYANOCOBALAMIN\SEMAGLUTIDE
     Indication: Weight decreased
     Route: 050

REACTIONS (5)
  - Drug ineffective [None]
  - Product preparation error [None]
  - Weight increased [None]
  - Tremor [None]
  - Discomfort [None]

NARRATIVE: CASE EVENT DATE: 20250513
